FAERS Safety Report 22386847 (Version 2)
Quarter: 2023Q2

REPORT INFORMATION
  Report Type: Report from Study
  Country: US (occurrence: US)
  Receive Date: 20230531
  Receipt Date: 20230606
  Transmission Date: 20230721
  Serious: Yes (Death)
  Sender: FDA-Public Use
  Company Number: US-DECIPHERA PHARMACEUTICALS LLC-2023US000467

PATIENT
  Sex: Male

DRUGS (1)
  1. QINLOCK [Suspect]
     Active Substance: RIPRETINIB
     Indication: Product used for unknown indication
     Dosage: 150 MILLIGRAM, BID
     Route: 048

REACTIONS (3)
  - Death [Fatal]
  - Malaise [Unknown]
  - Extra dose administered [Unknown]
